FAERS Safety Report 18260301 (Version 1)
Quarter: 2020Q3

REPORT INFORMATION
  Report Type: Spontaneous
  Country: CH (occurrence: CH)
  Receive Date: 20200914
  Receipt Date: 20200914
  Transmission Date: 20201103
  Serious: Yes (Other)
  Sender: FDA-Public Use
  Company Number: CH-ROCHE-2672115

PATIENT

DRUGS (1)
  1. MABTHERA [Suspect]
     Active Substance: RITUXIMAB
     Indication: MARGINAL ZONE LYMPHOMA RECURRENT
     Route: 065

REACTIONS (3)
  - Non-Hodgkin^s lymphoma recurrent [Unknown]
  - Off label use [Unknown]
  - Drug ineffective [Unknown]
